FAERS Safety Report 9325014 (Version 1)
Quarter: 2013Q2

REPORT INFORMATION
  Report Type: Spontaneous
  Country: GB (occurrence: None)
  Receive Date: 20130530
  Receipt Date: 20130530
  Transmission Date: 20140414
  Serious: Yes (Hospitalization)
  Sender: FDA-Public Use
  Company Number: 1498778

PATIENT
  Age: 66 Year
  Sex: Male

DRUGS (12)
  1. GEMCITABINE HYDROCHLORIDE [Suspect]
     Dates: start: 20120926, end: 20121128
  2. CISPLATIN [Suspect]
     Indication: PRODUCT USED FOR UNKNOWN INDICATION
     Route: 042
     Dates: start: 20120926, end: 20121121
  3. MORPHINE SULPHATE [Suspect]
     Indication: PRODUCT USED FOR UNKNOWN INDICATION
     Route: 048
     Dates: start: 20120918
  4. SUNITINIB MALATE [Suspect]
     Dates: start: 20120927, end: 20120929
  5. (MORPHINE SULPHATE) [Suspect]
     Indication: PRODUCT USED FOR UNKNOWN INDICATION
     Route: 048
     Dates: start: 20121001
  6. PREDNISOLONE [Concomitant]
  7. TAMSULOSIN [Concomitant]
  8. PARACETAMOL [Concomitant]
  9. BISACODYL [Concomitant]
  10. METOCLOPRAMIDE [Concomitant]
  11. HYDROCORTISONE SODIUM SUCCINATE [Concomitant]
  12. MACROGOL 3350 [Concomitant]

REACTIONS (4)
  - Vomiting [None]
  - Nausea [None]
  - Drug ineffective [None]
  - Deep vein thrombosis [None]
